FAERS Safety Report 16822202 (Version 1)
Quarter: 2019Q3

REPORT INFORMATION
  Report Type: Spontaneous
  Country: SG (occurrence: SG)
  Receive Date: 20190918
  Receipt Date: 20190918
  Transmission Date: 20191005
  Serious: No
  Sender: FDA-Public Use
  Company Number: SG-MERZ NORTH AMERICA, INC.-19MRZ-00317

PATIENT
  Age: 45 Year
  Sex: Male

DRUGS (1)
  1. XEOMIN [Suspect]
     Active Substance: INCOBOTULINUMTOXINA
     Indication: SKIN COSMETIC PROCEDURE
     Dosage: 60 UNITS

REACTIONS (1)
  - Drug ineffective [Not Recovered/Not Resolved]
